FAERS Safety Report 8134379-4 (Version None)
Quarter: 2012Q1

REPORT INFORMATION
  Report Type: 
  Country: None (occurrence: None)
  Receive Date: 20120209
  Receipt Date: 20120131
  Transmission Date: 20120608
  Serious: Yes (Other)
  Sender: FDA-Public Use
  Company Number: 2012MA001595

PATIENT
  Age: 59 Year
  Sex: Male

DRUGS (3)
  1. CANDESARTAN CILEXETIL [Concomitant]
  2. SERTRALINE HYDROCHLORIDE [Suspect]
     Dates: start: 20120105
  3. HYOSCINE BUTYLBROMIDE [Concomitant]

REACTIONS (2)
  - FEELING ABNORMAL [None]
  - MALAISE [None]
